FAERS Safety Report 15061792 (Version 2)
Quarter: 2018Q3

REPORT INFORMATION
  Report Type: Spontaneous
  Country: FR (occurrence: FR)
  Receive Date: 20180625
  Receipt Date: 20180928
  Transmission Date: 20181010
  Serious: Yes (Hospitalization)
  Sender: FDA-Public Use
  Company Number: FR-BAUSCH-BL-2018-017449

PATIENT
  Age: 54 Year
  Sex: Female

DRUGS (17)
  1. AMAREL [Suspect]
     Active Substance: GLIMEPIRIDE
     Dosage: DOSE REDUCED
     Route: 048
  2. LANTUS [Suspect]
     Active Substance: INSULIN GLARGINE
     Indication: TYPE 2 DIABETES MELLITUS
     Dosage: 80 U, QD
     Route: 058
     Dates: start: 20180302, end: 20180308
  3. SOTAGLIFLOZIN [Suspect]
     Active Substance: SOTAGLIFLOZIN
     Route: 048
     Dates: start: 20180323, end: 20180419
  4. LEVOTHYROX [Concomitant]
     Active Substance: LEVOTHYROXINE
     Indication: HYPERTHYROIDISM
     Route: 048
     Dates: start: 20110406
  5. AMAREL [Suspect]
     Active Substance: GLIMEPIRIDE
     Indication: PRODUCT USED FOR UNKNOWN INDICATION
     Route: 048
     Dates: start: 2015, end: 20180601
  6. TRINITRIN [Concomitant]
     Active Substance: NITROGLYCERIN
     Indication: MYOCARDIAL INFARCTION
     Dosage: 1 DF PRN, AS REQUIRED
     Route: 050
     Dates: start: 20150523
  7. LANTUS [Suspect]
     Active Substance: INSULIN GLARGINE
     Dosage: 72 U, QD
     Route: 058
     Dates: start: 20180226, end: 20180228
  8. LANTUS [Suspect]
     Active Substance: INSULIN GLARGINE
     Dosage: 76 U, QD
     Route: 058
     Dates: start: 20180301, end: 20180301
  9. RAMIPRIL. [Concomitant]
     Active Substance: RAMIPRIL
     Indication: HYPERTENSION
     Route: 048
     Dates: start: 201609
  10. BISOPROLOL [Concomitant]
     Active Substance: BISOPROLOL
     Indication: HYPERTENSION
     Route: 048
     Dates: start: 201505
  11. PARACETAMOL [Concomitant]
     Active Substance: ACETAMINOPHEN
     Indication: NASOPHARYNGITIS
     Route: 048
     Dates: start: 20180522, end: 20180529
  12. METFORMIN HYDROCHLORIDE. [Suspect]
     Active Substance: METFORMIN HYDROCHLORIDE
     Indication: TYPE 2 DIABETES MELLITUS
     Route: 048
     Dates: start: 2001
  13. SOTAGLIFLOZIN [Suspect]
     Active Substance: SOTAGLIFLOZIN
     Indication: TYPE 2 DIABETES MELLITUS
     Route: 048
     Dates: start: 20180420, end: 20180524
  14. SOTAGLIFLOZIN [Suspect]
     Active Substance: SOTAGLIFLOZIN
     Route: 048
     Dates: start: 20180525, end: 20180614
  15. LANTUS [Suspect]
     Active Substance: INSULIN GLARGINE
     Dosage: 84 U, QD
     Route: 058
     Dates: start: 20180309, end: 20180322
  16. ASPIRINE [Concomitant]
     Active Substance: ASPIRIN
     Indication: MYOCARDIAL INFARCTION
     Route: 048
     Dates: start: 201609
  17. AMOXICILLIN. [Concomitant]
     Active Substance: AMOXICILLIN
     Indication: NASOPHARYNGITIS
     Route: 048
     Dates: start: 20180522, end: 20180529

REACTIONS (1)
  - Palpitations [Recovered/Resolved]

NARRATIVE: CASE EVENT DATE: 20180606
